FAERS Safety Report 25534864 (Version 1)
Quarter: 2025Q3

REPORT INFORMATION
  Report Type: Spontaneous
  Country: EU (occurrence: EU)
  Receive Date: 20250709
  Receipt Date: 20250709
  Transmission Date: 20251021
  Serious: Yes (Hospitalization, Other)
  Sender: MYLAN
  Company Number: None

PATIENT
  Age: 68 Year
  Sex: Male

DRUGS (7)
  1. AMIODARONE [Suspect]
     Active Substance: AMIODARONE
     Indication: Atrial fibrillation
     Dosage: 1 DOSAGE FORM, QD
     Dates: start: 20250523, end: 20250607
  2. PROPOFOL [Suspect]
     Active Substance: PROPOFOL
     Indication: Sedative therapy
     Dosage: 1 DOSAGE FORM, QD
     Dates: start: 20250520, end: 20250531
  3. PROPOFOL [Suspect]
     Active Substance: PROPOFOL
     Dosage: 1 DOSAGE FORM, QD
     Dates: start: 20250607, end: 20250610
  4. SUFENTANIL [Suspect]
     Active Substance: SUFENTANIL
     Indication: Sedative therapy
     Dosage: 1 DOSAGE FORM, QD
     Dates: start: 20250520, end: 20250531
  5. SUFENTANIL [Suspect]
     Active Substance: SUFENTANIL
     Dosage: 1 DOSAGE FORM, QD
     Dates: start: 20250607, end: 20250610
  6. PIPERACILLIN SODIUM\TAZOBACTAM SODIUM [Suspect]
     Active Substance: PIPERACILLIN SODIUM\TAZOBACTAM SODIUM
     Indication: Staphylococcal infection
     Dosage: 4 GRAM, QD
     Dates: start: 20250528, end: 20250608
  7. LANSOPRAZOLE [Concomitant]
     Active Substance: LANSOPRAZOLE
     Indication: Gastrooesophageal reflux disease
     Dosage: 15 MILLIGRAM, QD
     Dates: start: 20250528, end: 20250608

REACTIONS (2)
  - Stevens-Johnson syndrome [Recovering/Resolving]
  - Eosinophilia [Recovered/Resolved]

NARRATIVE: CASE EVENT DATE: 20250603
